FAERS Safety Report 4411844-4 (Version None)
Quarter: 2004Q3

REPORT INFORMATION
  Report Type: 
  Country: None (occurrence: None)
  Receive Date: 20040730
  Receipt Date: 20040518
  Transmission Date: 20050211
  Serious: No
  Sender: FDA-Public Use
  Company Number: US-GLAXOSMITHKLINE-A0511297A

PATIENT
  Age: 58 Year
  Sex: Female

DRUGS (4)
  1. VENTOLIN [Suspect]
     Indication: ASTHMA
     Route: 055
  2. PULMICORT [Concomitant]
  3. SEREVENT [Concomitant]
     Route: 055
  4. ALBUTEROL [Concomitant]

REACTIONS (2)
  - HYPOAESTHESIA [None]
  - TACHYCARDIA [None]
